FAERS Safety Report 5328411-0 (Version None)
Quarter: 2007Q2

REPORT INFORMATION
  Report Type: 
  Country: None (occurrence: None)
  Receive Date: 20070518
  Receipt Date: 20070508
  Transmission Date: 20071010
  Serious: Yes (Other)
  Sender: FDA-Public Use
  Company Number: JP-JNJFOC-20070503020

PATIENT
  Sex: Female

DRUGS (21)
  1. REMICADE [Suspect]
     Route: 042
  2. REMICADE [Suspect]
     Route: 042
  3. REMICADE [Suspect]
     Route: 042
  4. REMICADE [Suspect]
     Route: 042
  5. REMICADE [Suspect]
     Route: 042
  6. REMICADE [Suspect]
     Route: 042
  7. REMICADE [Suspect]
     Indication: RHEUMATOID ARTHRITIS
     Route: 042
  8. RHEUMATREX [Suspect]
     Route: 048
  9. RHEUMATREX [Suspect]
     Route: 048
  10. RHEUMATREX [Suspect]
     Indication: RHEUMATOID ARTHRITIS
     Route: 048
  11. ANTIHISTAMINES [Concomitant]
     Indication: PROPHYLAXIS
  12. PREDONINE [Concomitant]
     Route: 048
  13. PREDONINE [Concomitant]
     Route: 048
  14. PREDONINE [Concomitant]
     Route: 048
  15. ADRENAL HORMONE PREPARATION [Concomitant]
     Indication: RHEUMATOID ARTHRITIS
  16. PROGRAF [Concomitant]
     Indication: RHEUMATOID ARTHRITIS
     Route: 048
  17. GASTER [Concomitant]
     Indication: PROPHYLAXIS
  18. AZULFIDINE EN-TABS [Concomitant]
     Indication: RHEUMATOID ARTHRITIS
     Route: 048
  19. OSTELUC [Concomitant]
     Indication: RHEUMATOID ARTHRITIS
     Route: 048
  20. FOLIAMIN [Concomitant]
     Route: 048
  21. BENET [Concomitant]
     Route: 048

REACTIONS (1)
  - GINGIVITIS [None]
